FAERS Safety Report 22112740 (Version 3)
Quarter: 2023Q2

REPORT INFORMATION
  Report Type: Report from Study
  Country: US (occurrence: US)
  Receive Date: 20230319
  Receipt Date: 20230505
  Transmission Date: 20230722
  Serious: Yes (Hospitalization, Other)
  Sender: FDA-Public Use
  Company Number: US-ABBVIE-4318622

PATIENT
  Age: 71 Year
  Sex: Female
  Weight: 56.699 kg

DRUGS (13)
  1. HUMIRA [Suspect]
     Active Substance: ADALIMUMAB
     Indication: Rheumatoid arthritis
     Dosage: CITRATE FREE?FORM STRENGTH: 40MG
     Route: 058
     Dates: start: 2021, end: 20230212
  2. HUMIRA [Suspect]
     Active Substance: ADALIMUMAB
     Dosage: CITRATE FREE?FORM STRENGTH: 40MG
     Route: 058
     Dates: start: 20230414
  3. VERAPAMIL [Concomitant]
     Active Substance: VERAPAMIL HYDROCHLORIDE
     Indication: Blood pressure management
  4. TRIAMTERENE [Concomitant]
     Active Substance: TRIAMTERENE
     Indication: Diuretic therapy
  5. CALCIUM [Concomitant]
     Active Substance: CALCIUM
     Indication: Product used for unknown indication
  6. POTASSIUM [Concomitant]
     Active Substance: POTASSIUM
     Indication: Blood potassium decreased
  7. CITALOPRAM [Concomitant]
     Active Substance: CITALOPRAM HYDROBROMIDE
     Indication: Product used for unknown indication
  8. ASPIRIN [Concomitant]
     Active Substance: ASPIRIN
     Indication: Product used for unknown indication
  9. FUROSEMIDE [Concomitant]
     Active Substance: FUROSEMIDE
     Indication: Diuretic therapy
  10. PRAVASTATIN [Concomitant]
     Active Substance: PRAVASTATIN
     Indication: Blood cholesterol
  11. PROLIA [Concomitant]
     Active Substance: DENOSUMAB
     Indication: Osteoporosis
  12. MIRALAX [Concomitant]
     Active Substance: POLYETHYLENE GLYCOL 3350
     Indication: Constipation
  13. ESTRADIOL [Concomitant]
     Active Substance: ESTRADIOL
     Indication: Product used for unknown indication

REACTIONS (12)
  - Bowel movement irregularity [Unknown]
  - Diarrhoea [Unknown]
  - Decreased appetite [Recovering/Resolving]
  - COVID-19 [Recovered/Resolved]
  - Pneumonia bacterial [Recovered/Resolved]
  - Peripheral swelling [Recovering/Resolving]
  - Feeling abnormal [Recovering/Resolving]
  - Insomnia [Recovering/Resolving]
  - Constipation [Recovering/Resolving]
  - Rectal prolapse [Unknown]
  - Vision blurred [Unknown]
  - Unevaluable event [Unknown]

NARRATIVE: CASE EVENT DATE: 20210701
